FAERS Safety Report 10461537 (Version 1)
Quarter: 2014Q3

REPORT INFORMATION
  Report Type: Spontaneous
  Country: US (occurrence: None)
  Receive Date: 20140916
  Receipt Date: 20140916
  Transmission Date: 20150326
  Serious: Yes (Other)
  Sender: FDA-Public Use
  Company Number: AMG201400336

PATIENT
  Age: 91 Year
  Sex: Female

DRUGS (21)
  1. FERAHEME [Suspect]
     Active Substance: FERUMOXYTOL NON-STOICHIOMETRIC MAGNETITE
     Indication: IRON DEFICIENCY ANAEMIA
     Dosage: 510 MG, SINGLE, INFUSION
     Dates: start: 20140903, end: 20140903
  2. ASPIRIN (ACETYLSALICYLIC ACID) ONGOING [Concomitant]
  3. ZOLOFT (SERTRALINE HYDROCHLORIDE) ONGOING [Concomitant]
  4. FUROSEMIDE (FUROSEMIDE) ONGOING [Concomitant]
  5. SENNA (SENNA ALEXANDRINA) ONGOING [Concomitant]
  6. VISTARIL PAMOATE (HYDROXYZINE PAMOATE) ONGOING [Concomitant]
  7. FOLIC ACID (FOLIC ACID) ONGOING [Concomitant]
  8. HYDROXYZINE HYDROCHLORIDE (HYDROXYZINE HYDROCHLORIDE) ONGOING [Concomitant]
  9. PRESERVATION ANTIOXIDENT MULTIPLE VITAMINS AND MATERIALS TABLET (ASCORBIC ACID, BETACAROTENE, CUPRIC OXIDE, DI-ALPHA TOCOPHERYL ACETATE, ZINC OXIDE) ONGOING [Concomitant]
  10. FISH OIL (FISH OIL) ONGOING [Concomitant]
  11. AMBIEN (ZOLPIDEM TARTRATE) ONGOING [Concomitant]
  12. ALLOPURINOL (ALLOPURINOL) ONGOING [Concomitant]
  13. OSCAL (CALCIUM CARBONATE) ONGOING [Concomitant]
  14. PANTOPRAZOLE (PANTOPRAZOLE) ONGOING [Concomitant]
  15. METOPROLOL SUCCINATE (METOPROLOL SUCCINATE) ONGOING [Concomitant]
  16. FEOSOL (FERROUS SULFATE) ONGOING [Concomitant]
  17. MULTIPLE VITAMINS (ASCORBIC ACID, ERGOCALCIFEROL, FOLIC ACID, RETINOL, TOCOPHERYL, VITAMIN B NOS) ONGOING [Concomitant]
  18. VITAMIN B12 (HYDROXOCOBALAMIN) ONGOING [Concomitant]
  19. DIAZEPAM (DIAZEPAM) ONGOING [Concomitant]
  20. SYNTHROID (LEVOTHYROXINE SODIUM) ONGOING [Concomitant]
  21. FORADIL AEROLIZER (FORMOTEROL FUMARATE) ONGOING [Concomitant]

REACTIONS (2)
  - Dyspnoea [None]
  - Acute pulmonary oedema [None]

NARRATIVE: CASE EVENT DATE: 20140903
